FAERS Safety Report 5139383-6 (Version None)
Quarter: 2006Q4

REPORT INFORMATION
  Report Type: 
  Country: None (occurrence: None)
  Receive Date: 20061024
  Receipt Date: 20061013
  Transmission Date: 20070319
  Serious: Yes (Hospitalization)
  Sender: FDA-Public Use
  Company Number: 2006-07-0542

PATIENT
  Age: 47 Year
  Sex: Male

DRUGS (7)
  1. PEG-INTRON [Suspect]
     Indication: HEPATITIS C
     Dosage: UNK, SC
     Route: 058
     Dates: start: 20060414
  2. RIBAVIRIN [Suspect]
     Indication: HEPATITIS C
     Dosage: UNK; PO
     Route: 048
     Dates: start: 20060414
  3. FOLIC ACID [Concomitant]
  4. VITAMIN B-12 [Concomitant]
  5. TOPROL-XL [Concomitant]
  6. DILAUDID (PREV.) [Concomitant]
  7. FLEXERIL (PREV.) [Concomitant]

REACTIONS (3)
  - ANOREXIA [None]
  - DEHYDRATION [None]
  - DEPRESSION [None]
